FAERS Safety Report 9008070 (Version 2)
Quarter: 2013Q4

REPORT INFORMATION
  Report Type: Spontaneous
  Country: US (occurrence: US)
  Receive Date: 20130111
  Receipt Date: 20131120
  Transmission Date: 20140711
  Serious: Yes (Hospitalization, Other)
  Sender: FDA-Public Use
  Company Number: US-BAYER-2013-003361

PATIENT
  Age: 21 Year
  Sex: Female

DRUGS (11)
  1. YAZ [Suspect]
     Indication: CONTRACEPTION
  2. YASMIN [Suspect]
     Indication: CONTRACEPTION
  3. AZITHROMYCIN [Concomitant]
     Dosage: 250 MG, UNK
     Dates: end: 20080421
  4. ALPRAZOLAM [Concomitant]
     Dosage: 0.5 MG, UNK
     Dates: end: 20080427
  5. ROBINUL [Concomitant]
     Dosage: 0.2 MG, UNK
     Route: 042
     Dates: start: 20080514
  6. DILAUDID [Concomitant]
     Dosage: 1 MG, UNK
     Route: 042
     Dates: start: 20080514
  7. ZOFRAN [Concomitant]
     Dosage: 4 MG, UNK
     Route: 042
     Dates: start: 20080514
  8. PERCOCET [Concomitant]
     Indication: PAIN
     Dosage: UNK
     Dates: start: 20080514
  9. LEVAQUIN [Concomitant]
     Dosage: 500 MG, OM
     Dates: start: 20080325
  10. ADDERALL [Concomitant]
     Dosage: UNK UNK, OM
     Dates: start: 20080522
  11. ATIVAN [Concomitant]
     Dosage: 0.5 MG, UNK
     Dates: start: 20080522

REACTIONS (5)
  - Cholecystectomy [None]
  - Cholecystitis chronic [None]
  - Injury [None]
  - Pain [None]
  - Pain [None]
